FAERS Safety Report 9566601 (Version 1)
Quarter: 2013Q3

REPORT INFORMATION
  Report Type: Spontaneous
  Country: US (occurrence: US)
  Receive Date: 20130930
  Receipt Date: 20130930
  Transmission Date: 20140515
  Serious: Yes (Other)
  Sender: FDA-Public Use
  Company Number: US-BAXTER-2013BAX037914

PATIENT
  Age: 29 Year
  Sex: Male

DRUGS (1)
  1. OSMITROL INJECTION (MANNITOL INJECTION, USP) [Suspect]
     Indication: ANGLE CLOSURE GLAUCOMA
     Route: 042

REACTIONS (4)
  - Toxicity to various agents [Recovered/Resolved]
  - Fluid overload [Recovered/Resolved]
  - Cardiac failure [Unknown]
  - Lethargy [Recovered/Resolved]
